FAERS Safety Report 15805177 (Version 2)
Quarter: 2019Q1

REPORT INFORMATION
  Report Type: Spontaneous
  Country: CZ (occurrence: CZ)
  Receive Date: 20190110
  Receipt Date: 20190122
  Transmission Date: 20190417
  Serious: Yes (Other)
  Sender: FDA-Public Use
  Company Number: CZ-TEVA-2019-CZ-995926

PATIENT
  Age: 13 Month
  Sex: Male
  Weight: 2.74 kg

DRUGS (1)
  1. ETOPOSIDE. [Suspect]
     Active Substance: ETOPOSIDE
     Indication: CHOROID PLEXUS CARCINOMA
     Dosage: 7 BLOCKS IN TOTAL
     Route: 037
     Dates: end: 201712

REACTIONS (3)
  - Klebsiella infection [Recovered/Resolved]
  - Pathogen resistance [Recovered/Resolved]
  - Febrile neutropenia [Recovered/Resolved]

NARRATIVE: CASE EVENT DATE: 2017
